FAERS Safety Report 11635381 (Version 1)
Quarter: 2015Q4

REPORT INFORMATION
  Report Type: Spontaneous
  Country: NL (occurrence: NL)
  Receive Date: 20151016
  Receipt Date: 20151016
  Transmission Date: 20160304
  Serious: Yes (Death, Hospitalization)
  Sender: FDA-Public Use
  Company Number: NL-CIPLA LTD.-2015NL07910

PATIENT

DRUGS (6)
  1. GANCICLOVIR. [Suspect]
     Active Substance: GANCICLOVIR
     Indication: METASTASIS
  2. GEMCITABINE [Suspect]
     Active Substance: GEMCITABINE\GEMCITABINE HYDROCHLORIDE
     Indication: NASOPHARYNGEAL CANCER
     Dosage: 1250 MG/KG2 AT DAY 1 AND 8 EACH CYCLE FOR 2 CYCLES
     Route: 042
  3. GANCICLOVIR. [Suspect]
     Active Substance: GANCICLOVIR
     Indication: NASOPHARYNGEAL CANCER
     Dosage: 450 MG TID FROM DAY 8 TILL 21 EACH CYCLE FOR 2 CYCLES
     Route: 048
  4. VALPROIC ACID. [Suspect]
     Active Substance: VALPROIC ACID
     Indication: METASTASIS
  5. VALPROIC ACID. [Suspect]
     Active Substance: VALPROIC ACID
     Indication: NASOPHARYNGEAL CANCER
     Dosage: 12.5 MG/KG FROM DAY 1 TILL DAY 14 EACH CYCLE FOR 2 CYCLES
     Route: 048
  6. GEMCITABINE [Suspect]
     Active Substance: GEMCITABINE\GEMCITABINE HYDROCHLORIDE
     Indication: METASTASIS

REACTIONS (4)
  - Pneumonia [None]
  - Disease progression [Fatal]
  - Nausea [None]
  - Pulmonary oedema [None]
